FAERS Safety Report 15290802 (Version 2)
Quarter: 2018Q4

REPORT INFORMATION
  Report Type: Spontaneous
  Country: GB (occurrence: GB)
  Receive Date: 20180817
  Receipt Date: 20180824
  Transmission Date: 20190204
  Serious: Yes (Other)
  Sender: FDA-Public Use
  Company Number: GB-FERRINGPH-2018FE04478

PATIENT

DRUGS (2)
  1. PICOLAX (ANHYDROUS CITRIC ACID\MAGNESIUM OXIDE\SODIUM PICOSULFATE) [Suspect]
     Active Substance: ANHYDROUS CITRIC ACID\MAGNESIUM OXIDE\SODIUM PICOSULFATE
     Indication: POST PROCEDURAL CONSTIPATION
     Dosage: UNK
     Route: 065
     Dates: start: 2014, end: 2016
  2. PICOLAX (ANHYDROUS CITRIC ACID\MAGNESIUM OXIDE\SODIUM PICOSULFATE) [Suspect]
     Active Substance: ANHYDROUS CITRIC ACID\MAGNESIUM OXIDE\SODIUM PICOSULFATE
     Dosage: 3X/DAY
     Route: 065
     Dates: start: 201307, end: 201310

REACTIONS (9)
  - Abdominal pain [Unknown]
  - Nausea [Unknown]
  - Off label use [Recovered/Resolved]
  - Vomiting [Unknown]
  - Proctalgia [Unknown]
  - Product use issue [Recovered/Resolved]
  - Syncope [Unknown]
  - Headache [Unknown]
  - Product use in unapproved indication [Recovered/Resolved]
